FAERS Safety Report 7815431-7 (Version None)
Quarter: 2011Q4

REPORT INFORMATION
  Report Type: 
  Country: None (occurrence: None)
  Receive Date: 20111014
  Receipt Date: 20111007
  Transmission Date: 20120403
  Serious: Yes (Other)
  Sender: FDA-Public Use
  Company Number: PHEH2011US06426

PATIENT
  Sex: Female

DRUGS (5)
  1. ANXIOLYTICS [Concomitant]
  2. CELEBREX [Concomitant]
  3. INSULIN [Concomitant]
  4. HUMALOG [Concomitant]
  5. ZELNORM [Suspect]
     Indication: IMPAIRED GASTRIC EMPTYING
     Dosage: 6 MG, QD

REACTIONS (7)
  - IMPAIRED GASTRIC EMPTYING [None]
  - ABDOMINAL DISTENSION [None]
  - CONSTIPATION [None]
  - FLATULENCE [None]
  - CONDITION AGGRAVATED [None]
  - NAUSEA [None]
  - WEIGHT INCREASED [None]
